FAERS Safety Report 4626026-0 (Version None)
Quarter: 2005Q1

REPORT INFORMATION
  Report Type: 
  Country: None (occurrence: None)
  Receive Date: 20050330
  Receipt Date: 20050315
  Transmission Date: 20050727
  Serious: Yes (Other)
  Sender: FDA-Public Use
  Company Number: USA050393339

PATIENT
  Age: 79 Year
  Sex: Female
  Weight: 76 kg

DRUGS (3)
  1. HUMULIN 50/50 [Suspect]
     Dosage: 14 U/ 1 IN THE EVENING
     Dates: start: 19980101
  2. HUMULIN 70/30 [Suspect]
     Dosage: 28 U/ 1 IN THE MORNING
     Dates: start: 19980101
  3. HUMULIN R [Suspect]

REACTIONS (5)
  - CATARACT [None]
  - CORNEAL TRANSPLANT [None]
  - PAIN IN EXTREMITY [None]
  - PHARMACEUTICAL PRODUCT COMPLAINT [None]
  - VISUAL DISTURBANCE [None]
